FAERS Safety Report 7203858-6 (Version None)
Quarter: 2010Q4

REPORT INFORMATION
  Report Type: 
  Country: None (occurrence: None)
  Receive Date: 20101230
  Receipt Date: 20101221
  Transmission Date: 20110411
  Serious: Yes (Hospitalization)
  Sender: FDA-Public Use
  Company Number: IT-JNJFOC-20101207205

PATIENT
  Sex: Male

DRUGS (7)
  1. SERENASE [Suspect]
     Indication: CONFUSIONAL STATE
     Route: 048
  2. TAVOR [Suspect]
     Indication: SEDATION
     Route: 048
  3. METFORMIN [Concomitant]
     Route: 048
  4. PLAUNAC [Concomitant]
     Route: 048
  5. ASPIRIN [Concomitant]
     Route: 048
  6. TOLTERODINE TARTRATE [Concomitant]
     Route: 048
  7. LENDORMIN [Concomitant]

REACTIONS (3)
  - CONFUSIONAL STATE [None]
  - DYSSTASIA [None]
  - PARKINSONISM [None]
